FAERS Safety Report 8118953 (Version 3)
Quarter: 2012Q4

REPORT INFORMATION
  Report Type: Report from Study
  Country: FR (occurrence: FR)
  Receive Date: 20110902
  Receipt Date: 20121011
  Transmission Date: 20130627
  Serious: Yes (Hospitalization)
  Sender: FDA-Public Use
  Company Number: PHHO2011FR14359

PATIENT
  Age: 56 Year
  Sex: Female
  Weight: 90 kg

DRUGS (14)
  1. STI571 [Suspect]
     Indication: ACUTE LYMPHOCYTIC LEUKAEMIA
     Dosage: 800 mg, QD
     Route: 048
     Dates: start: 20110607, end: 20110704
  2. STI571 [Suspect]
     Dosage: UNK
     Dates: start: 20110713
  3. METHOTREXATE [Suspect]
     Dosage: 15 mg, UNK
     Route: 042
     Dates: start: 20110607, end: 20110607
  4. METHOTREXATE [Suspect]
     Dosage: 15 mg, UNK
     Route: 042
     Dates: start: 20110614, end: 20110614
  5. METHOTREXATE [Suspect]
     Dosage: 900 mg, BID
     Dates: start: 20120307, end: 20120308
  6. CYTARABINE [Suspect]
     Dosage: 40 mg, QD
     Route: 042
     Dates: start: 20110607, end: 20110607
  7. CYTARABINE [Suspect]
     Dosage: UNK
  8. DEXAMETHASONE [Suspect]
     Dosage: 40 mg, UNK
     Route: 042
     Dates: start: 20110607, end: 20110629
  9. VINCRISTINE [Suspect]
     Dosage: 2 mg, UNK
     Route: 042
     Dates: start: 20110607, end: 20110628
  10. ARACYTINE [Suspect]
     Dosage: 5600 ng, BID
     Route: 042
     Dates: start: 20120308, end: 20120309
  11. BACTRIM FORTE [Concomitant]
     Indication: PROPHYLAXIS
     Dosage: 1 DF, QD
     Route: 048
     Dates: start: 20110608, end: 20110712
  12. NEUPOGEN [Concomitant]
     Indication: APLASIA
     Dosage: UNK
     Route: 058
  13. ROVALCYTE [Concomitant]
     Indication: CYTOMEGALOVIRUS INFECTION
     Dosage: 450 mg, BID
     Route: 048
  14. DIFFU K [Concomitant]
     Indication: HYPOKALAEMIA
     Dosage: 5 mg, QD
     Route: 048
     Dates: start: 20110628, end: 20110712

REACTIONS (3)
  - Cytomegalovirus infection [Recovered/Resolved]
  - Lung disorder [Recovered/Resolved]
  - Febrile neutropenia [Recovered/Resolved with Sequelae]
